FAERS Safety Report 10067218 (Version 3)
Quarter: 2014Q3

REPORT INFORMATION
  Report Type: Spontaneous
  Country: US (occurrence: None)
  Receive Date: 20140407
  Receipt Date: 20140923
  Transmission Date: 20150326
  Serious: Yes (Life-Threatening, Hospitalization)
  Sender: FDA-Public Use
  Company Number: 1713747-2014-99938

PATIENT
  Age: 89 Year
  Sex: Female
  Weight: 89 kg

DRUGS (4)
  1. 2008T HEMODIALYSIS MACHINE [Concomitant]
  2. OPTIFLUX DIALYZER [Concomitant]
     Active Substance: DEVICE
  3. 0.9% SODIUM CHLORIDE INJECTION, USF [Suspect]
     Active Substance: SODIUM CHLORIDE
     Indication: RENAL FAILURE CHRONIC
     Dosage: HEMODIALYSIS
     Dates: start: 20140307
  4. NATURALYTE AND GRANUFLO [Concomitant]

REACTIONS (6)
  - Nausea [None]
  - Cardiac arrest [None]
  - Syncope [None]
  - Haemodialysis [None]
  - Hyperhidrosis [None]
  - Hypotension [None]

NARRATIVE: CASE EVENT DATE: 20140307
